FAERS Safety Report 22031941 (Version 1)
Quarter: 2023Q1

REPORT INFORMATION
  Report Type: Spontaneous
  Country: US (occurrence: US)
  Receive Date: 20230224
  Receipt Date: 20230224
  Transmission Date: 20230418
  Serious: No
  Sender: FDA-Public Use
  Company Number: US-AMGEN-USASP2023032694

PATIENT
  Age: 33 Year
  Sex: Male

DRUGS (5)
  1. OTEZLA [Suspect]
     Active Substance: APREMILAST
     Indication: Psoriasis
     Dosage: 30 MILLIGRAM, BID
     Route: 048
     Dates: start: 20230124
  2. Betameth [Concomitant]
     Dosage: 0.05 PERCENT
  3. ESOMEPRAZOLE [Concomitant]
     Active Substance: ESOMEPRAZOLE
     Dosage: 20 MILLIGRAM
  4. FISH OIL [Concomitant]
     Active Substance: FISH OIL
     Dosage: 500 MILLIGRAM
  5. FLUTICASONE [Concomitant]
     Active Substance: FLUTICASONE
     Dosage: 50 MICROGRAM

REACTIONS (2)
  - Psoriasis [Unknown]
  - Fatigue [Unknown]

NARRATIVE: CASE EVENT DATE: 20230101
